FAERS Safety Report 7277479-3 (Version None)
Quarter: 2011Q1

REPORT INFORMATION
  Report Type: 
  Country: None (occurrence: None)
  Receive Date: 20110207
  Receipt Date: 20110124
  Transmission Date: 20110831
  Serious: Yes (Hospitalization, Other)
  Sender: FDA-Public Use
  Company Number: US-ELI_LILLY_AND_COMPANY-US201012000158

PATIENT
  Sex: Female

DRUGS (15)
  1. CELEXA [Concomitant]
  2. FOLIC ACID [Concomitant]
  3. METAMUCIL-2 [Concomitant]
  4. FORTEO [Suspect]
     Indication: OSTEOPOROSIS
     Dosage: 20 UG, DAILY (1/D)
     Route: 058
     Dates: start: 20101026, end: 20101117
  5. ACYCLOVIR [Concomitant]
  6. SYNTHROID [Concomitant]
  7. MIRALAX [Concomitant]
  8. TRAMADOL HCL [Concomitant]
  9. CALTRATE /00108001/ [Concomitant]
  10. PREDNISONE [Concomitant]
  11. TYLENOL (CAPLET) [Concomitant]
  12. SENNA [Concomitant]
  13. FORTEO [Suspect]
     Dosage: 20 UG, DAILY (1/D)
     Dates: start: 20101121
  14. COLACE [Concomitant]
  15. VITAMIN D [Concomitant]

REACTIONS (5)
  - SPINOCEREBELLAR ATAXIA [None]
  - CONCUSSION [None]
  - LOSS OF CONSCIOUSNESS [None]
  - FALL [None]
  - ANAEMIA HAEMOLYTIC AUTOIMMUNE [None]
